APPROVED DRUG PRODUCT: AZELASTINE HYDROCHLORIDE AND FLUTICASONE PROPIONATE
Active Ingredient: AZELASTINE HYDROCHLORIDE; FLUTICASONE PROPIONATE
Strength: 0.137MG/SPRAY;0.05MG/SPRAY
Dosage Form/Route: SPRAY, METERED;NASAL
Application: A208111 | Product #001 | TE Code: AB
Applicant: PADAGIS ISRAEL PHARMACEUTICALS LTD
Approved: Feb 18, 2021 | RLD: No | RS: No | Type: RX